FAERS Safety Report 21776779 (Version 7)
Quarter: 2024Q3

REPORT INFORMATION
  Report Type: Spontaneous
  Country: FR (occurrence: FR)
  Receive Date: 20221226
  Receipt Date: 20240923
  Transmission Date: 20241017
  Serious: Yes (Other)
  Sender: AUROBINDO
  Company Number: FR-PFIZER INC-PV202200116440

PATIENT
  Age: 84 Year
  Sex: Female
  Weight: 50 kg

DRUGS (15)
  1. LETROZOLE [Suspect]
     Active Substance: LETROZOLE
     Indication: Product used for unknown indication
     Dosage: 25 MILLIGRAM
     Route: 065
     Dates: start: 20200114
  2. ACETAMINOPHEN [Suspect]
     Active Substance: ACETAMINOPHEN
     Indication: Product used for unknown indication
     Dosage: UNK
     Route: 065
  3. TRAMADOL [Suspect]
     Active Substance: TRAMADOL\TRAMADOL HYDROCHLORIDE
     Indication: Product used for unknown indication
     Dosage: UNK
     Route: 065
  4. FEMARA [Suspect]
     Active Substance: LETROZOLE
     Indication: Product used for unknown indication
     Dosage: 2.5 MILLIGRAM, ONCE A DAY
     Route: 065
     Dates: start: 20200114
  5. FLECAINIDE [Suspect]
     Active Substance: FLECAINIDE
     Indication: Arrhythmia
     Dosage: 100 UNK
     Route: 065
  6. IBRANCE [Suspect]
     Active Substance: PALBOCICLIB
     Indication: Breast cancer metastatic
     Dosage: 100 MILLIGRAM, ONCE A DAY
     Route: 065
     Dates: start: 20220122, end: 20220211
  7. IBRANCE [Suspect]
     Active Substance: PALBOCICLIB
     Dosage: 125 MILLIGRAM, ONCE A DAY
     Route: 065
     Dates: start: 20200414
  8. IBRANCE [Suspect]
     Active Substance: PALBOCICLIB
     Dosage: 100 MILLIGRAM, CYCLICAL(X/DAY FOR 21 DAYS FOLLOWED BY A ONE-WEEK BREAK)
     Route: 065
  9. Oftamac plus [Concomitant]
     Indication: Age-related macular degeneration
     Dosage: UNK
     Route: 065
  10. LYRICA [Concomitant]
     Active Substance: PREGABALIN
     Indication: Pain
     Dosage: 25 UNK
     Route: 065
  11. Artelac [Concomitant]
     Indication: Age-related macular degeneration
     Dosage: UNK
     Route: 065
  12. ASPIRIN [Concomitant]
     Active Substance: ASPIRIN
     Indication: Product used for unknown indication
     Dosage: UNK
     Route: 065
  13. ELIQUIS [Concomitant]
     Active Substance: APIXABAN
     Indication: Product used for unknown indication
     Dosage: 2 UNK, TWO TIMES A DAY (MORNING AND EVENING)
     Route: 065
  14. BISOPROLOL [Concomitant]
     Active Substance: BISOPROLOL\BISOPROLOL FUMARATE
     Indication: Product used for unknown indication
     Dosage: UNK, ONCE A DAY
     Route: 065
  15. VALSARTAN [Concomitant]
     Active Substance: VALSARTAN
     Indication: Product used for unknown indication
     Dosage: UNK, ONCE A DAY
     Route: 065

REACTIONS (14)
  - Arrhythmia [Unknown]
  - Femur fracture [Recovering/Resolving]
  - Femoral neck fracture [Recovering/Resolving]
  - Spinal fracture [Not Recovered/Not Resolved]
  - Obstruction [Recovered/Resolved]
  - Abdominal pain [Recovered/Resolved]
  - Nausea [Recovering/Resolving]
  - Limb injury [Recovered/Resolved]
  - Musculoskeletal disorder [Recovering/Resolving]
  - Fall [Recovered/Resolved]
  - Dyspnoea exertional [Recovered/Resolved]
  - Connective tissue disorder [Recovered/Resolved]
  - Balance disorder [Recovered/Resolved]
  - Radiation injury [Recovered/Resolved]

NARRATIVE: CASE EVENT DATE: 20200915
